FAERS Safety Report 8428636-1 (Version None)
Quarter: 2012Q2

REPORT INFORMATION
  Report Type: 
  Country: None (occurrence: None)
  Receive Date: 20120606
  Receipt Date: 20120606
  Transmission Date: 20120825
  Serious: Yes (Other)
  Sender: FDA-Public Use
  Company Number: None

PATIENT
  Sex: Male
  Weight: 9 kg

DRUGS (1)
  1. JOHNSON'S(R) BEDTIME BATH [Suspect]
     Indication: AROMATHERAPY
     Dosage: CAPFUL, 1XNIGHT, ORAL
     Route: 048

REACTIONS (6)
  - PRODUCT FORMULATION ISSUE [None]
  - DYSPNOEA [None]
  - INCREASED UPPER AIRWAY SECRETION [None]
  - PULMONARY CONGESTION [None]
  - ACCIDENTAL EXPOSURE [None]
  - NASOPHARYNGITIS [None]
